FAERS Safety Report 15497225 (Version 3)
Quarter: 2019Q1

REPORT INFORMATION
  Report Type: Spontaneous
  Country: US (occurrence: US)
  Receive Date: 20181015
  Receipt Date: 20190326
  Transmission Date: 20190417
  Serious: No
  Sender: FDA-Public Use
  Company Number: US-PFIZER INC-2018412656

PATIENT
  Age: 58 Year
  Sex: Female

DRUGS (9)
  1. ESTRING [Suspect]
     Active Substance: ESTRADIOL
     Indication: HORMONE THERAPY
  2. PROMETRIUM [Concomitant]
     Active Substance: PROGESTERONE
     Indication: BLOOD TESTOSTERONE ABNORMAL
     Dosage: 300 MG, 1X/DAY (AT NIGHT/ EVERY NIGHT)
  3. ESTRING [Suspect]
     Active Substance: ESTRADIOL
     Indication: HORMONE LEVEL ABNORMAL
  4. ESTRING [Suspect]
     Active Substance: ESTRADIOL
     Indication: HOT FLUSH
  5. PROMETRIUM [Concomitant]
     Active Substance: PROGESTERONE
     Indication: HORMONE LEVEL ABNORMAL
     Dosage: 200 MG, 1X/DAY [NIGHTLY]
  6. ESTRING [Suspect]
     Active Substance: ESTRADIOL
     Indication: MENOPAUSAL SYMPTOMS
     Dosage: UNK, EVERY 3 MONTHS (VAGINAL RING LAST 3 MONTHS)
  7. ESTRING [Suspect]
     Active Substance: ESTRADIOL
     Indication: MENOPAUSAL DISORDER
  8. ESTRING [Suspect]
     Active Substance: ESTRADIOL
     Indication: BLOOD TESTOSTERONE ABNORMAL
  9. PROMETRIUM [Concomitant]
     Active Substance: PROGESTERONE
     Indication: MENOPAUSAL SYMPTOMS

REACTIONS (1)
  - Drug ineffective for unapproved indication [Unknown]
